FAERS Safety Report 4398315-9 (Version None)
Quarter: 2004Q3

REPORT INFORMATION
  Report Type: 
  Country: None (occurrence: None)
  Receive Date: 20040712
  Receipt Date: 20040628
  Transmission Date: 20050211
  Serious: Yes (Other)
  Sender: FDA-Public Use
  Company Number: 2004043547

PATIENT
  Age: 74 Year
  Sex: Male

DRUGS (11)
  1. ZITHROMAX [Suspect]
     Indication: PYREXIA
     Dosage: 500 MG (1 D), ORAL
     Route: 048
     Dates: start: 20040619, end: 20040621
  2. LOXOPROFEN SODIUM (LOXOPROFEN SODIUM) [Concomitant]
  3. ALL OTHER THERAPEUTIC PRODUCTS (ALL OTHER THERAPEUTIC PRODUCTS) [Concomitant]
  4. DIGESTIVES, INCL ENZYMES (DIGESTIVE, INCL ENZYMES) [Concomitant]
  5. BROTIZOLAM (BROTIZOLAM) [Concomitant]
  6. FAMOTIDINE [Concomitant]
  7. NAFTOPIDIL (NAFTOPIDIL) [Concomitant]
  8. FURSULTIAMINE (FURSULTIAMINE) [Concomitant]
  9. THIAMINE HCL [Concomitant]
  10. ETHYL LOFLAZEPATE (ETHYL LOFLAZEPATE) [Concomitant]
  11. TIZANIDINE HCL [Concomitant]

REACTIONS (2)
  - URINARY RETENTION [None]
  - URINE FLOW DECREASED [None]
